FAERS Safety Report 7162122-4 (Version None)
Quarter: 2010Q4

REPORT INFORMATION
  Report Type: 
  Country: None (occurrence: None)
  Receive Date: 20101215
  Receipt Date: 20090814
  Transmission Date: 20110411
  Serious: Yes (Other)
  Sender: FDA-Public Use
  Company Number: GB-PFIZER INC-2009254816

PATIENT
  Age: 55 Year

DRUGS (5)
  1. LYRICA [Suspect]
     Indication: ANXIETY
     Dosage: 125 MG, 2X/DAY
     Route: 048
     Dates: start: 20090501, end: 20090707
  2. LYRICA [Suspect]
     Indication: PAIN
  3. MORPHINE [Concomitant]
     Indication: PAIN
     Dosage: 20 MG, 2X/DAY
     Route: 048
  4. NICORANDIL [Concomitant]
     Indication: CARDIAC DISORDER
     Dosage: UNK
     Route: 048
  5. WARFARIN [Concomitant]
     Dosage: UNK

REACTIONS (8)
  - CHOKING SENSATION [None]
  - DRY MOUTH [None]
  - HYPOAESTHESIA ORAL [None]
  - LIP SWELLING [None]
  - OEDEMA MOUTH [None]
  - PHARYNGEAL OEDEMA [None]
  - SWOLLEN TONGUE [None]
  - THIRST [None]
